FAERS Safety Report 4327533-0 (Version None)
Quarter: 2004Q1

REPORT INFORMATION
  Report Type: 
  Country: None (occurrence: None)
  Receive Date: 20040325
  Receipt Date: 20040312
  Transmission Date: 20041129
  Serious: Yes (Hospitalization)
  Sender: FDA-Public Use
  Company Number: 2004PK00502

PATIENT
  Age: 50 Year
  Sex: Male
  Weight: 86 kg

DRUGS (8)
  1. BELOC ZOK [Suspect]
     Indication: ATRIAL FIBRILLATION
     Dosage: 47.5 MG BID PO, FEW YEARS
     Route: 048
  2. CORDAREX [Suspect]
     Indication: ATRIAL FIBRILLATION
     Dosage: 100 MG DAILY PO
     Route: 048
  3. DIGITOXIN INJ [Suspect]
     Indication: ATRIAL FIBRILLATION
     Dosage: 0.07 MG DAILY PO
     Route: 048
     Dates: end: 20030907
  4. NEXIUM [Concomitant]
  5. AFONILUM [Concomitant]
  6. FALITHROM [Concomitant]
  7. JENAPURINOL [Concomitant]
  8. LASIX [Concomitant]

REACTIONS (6)
  - CARDIAC FAILURE [None]
  - DIZZINESS [None]
  - DRUG INTERACTION [None]
  - HYPERHIDROSIS [None]
  - SENSORY LOSS [None]
  - SINUS BRADYCARDIA [None]
